FAERS Safety Report 5411513-8 (Version None)
Quarter: 2007Q3

REPORT INFORMATION
  Report Type: 
  Country: None (occurrence: None)
  Receive Date: 20070810
  Receipt Date: 20070731
  Transmission Date: 20080115
  Serious: Yes (Other)
  Sender: FDA-Public Use
  Company Number: ES-BOEHRINGER INGELHEIM PHARMACEUTICALS, INC.-2007-DE-04510GD

PATIENT
  Sex: Female

DRUGS (2)
  1. NEVIRAPINE [Suspect]
     Indication: HIV INFECTION
  2. ANTI-HIV AGENT [Suspect]
     Indication: HIV INFECTION

REACTIONS (4)
  - COMPLICATION OF PREGNANCY [None]
  - HEPATOTOXICITY [None]
  - PYREXIA [None]
  - RASH [None]
